FAERS Safety Report 11470424 (Version 2)
Quarter: 2015Q3

REPORT INFORMATION
  Report Type: Spontaneous
  Country: US (occurrence: US)
  Receive Date: 20150903
  Receipt Date: 20150903
  Transmission Date: 20151125
  Serious: Yes (Other)
  Sender: FDA-Public Use
  Company Number: US-ELI_LILLY_AND_COMPANY-US201108001191

PATIENT
  Age: 45 Year
  Sex: Female
  Weight: 117.91 kg

DRUGS (3)
  1. HUMIRA                                  /USA/ [Concomitant]
     Indication: PSORIASIS
     Dosage: 80 MG, QD
     Route: 058
     Dates: start: 20110610, end: 20110610
  2. HUMIRA                                  /USA/ [Concomitant]
     Dosage: 40 MG, 2/W
     Route: 058
     Dates: start: 20110624
  3. CYMBALTA [Suspect]
     Active Substance: DULOXETINE HYDROCHLORIDE
     Indication: DEPRESSION
     Dosage: UNK UNK, QD
     Route: 048

REACTIONS (7)
  - Muscular weakness [Unknown]
  - Hypoaesthesia [Unknown]
  - Paraesthesia [Unknown]
  - Abdominal pain [Unknown]
  - Fatigue [Unknown]
  - Muscle spasms [Unknown]
  - Rectal haemorrhage [Unknown]

NARRATIVE: CASE EVENT DATE: 20110610
